FAERS Safety Report 4375721-X (Version None)
Quarter: 2004Q2

REPORT INFORMATION
  Report Type: 
  Country: None (occurrence: None)
  Receive Date: 20040608
  Receipt Date: 20030203
  Transmission Date: 20050107
  Serious: Yes (Life-Threatening, Other)
  Sender: FDA-Public Use
  Company Number: 200310417BCC

PATIENT
  Age: 45 Year
  Sex: Female
  Weight: 49.8957 kg

DRUGS (10)
  1. ALEVE [Suspect]
     Indication: ARTHRALGIA
     Dosage: 440 MG, ONCE, ORAL; 220 MG, ONCE, ORAL
     Route: 048
     Dates: start: 20030117
  2. ALEVE [Suspect]
     Indication: BURSITIS
     Dosage: 440 MG, ONCE, ORAL; 220 MG, ONCE, ORAL
     Route: 048
     Dates: start: 20030117
  3. ALEVE [Suspect]
     Indication: ARTHRALGIA
     Dosage: 440 MG, ONCE, ORAL; 220 MG, ONCE, ORAL
     Route: 048
     Dates: start: 20030122
  4. ALEVE [Suspect]
     Indication: BURSITIS
     Dosage: 440 MG, ONCE, ORAL; 220 MG, ONCE, ORAL
     Route: 048
     Dates: start: 20030122
  5. DITROPHAN [Concomitant]
  6. ZOLOFT [Concomitant]
  7. ASPIRIN [Concomitant]
  8. EXCEDRIN /OLD FORM/ [Concomitant]
  9. BETASERON [Concomitant]
  10. INTRAVENOUS INJECTION FOR CATSCAN [Concomitant]

REACTIONS (6)
  - DYSPNOEA [None]
  - HYPERSENSITIVITY [None]
  - LOSS OF CONSCIOUSNESS [None]
  - OEDEMA PERIPHERAL [None]
  - OROPHARYNGEAL SWELLING [None]
  - SWELLING FACE [None]
